FAERS Safety Report 4326328-1 (Version None)
Quarter: 2004Q1

REPORT INFORMATION
  Report Type: 
  Country: None (occurrence: None)
  Receive Date: 20040323
  Receipt Date: 20040310
  Transmission Date: 20041129
  Serious: Yes (Hospitalization)
  Sender: FDA-Public Use
  Company Number: US-JNJFOC-20040106064

PATIENT
  Age: 55 Year
  Sex: Female

DRUGS (6)
  1. REMICADE [Suspect]
     Indication: RHEUMATOID ARTHRITIS
     Dosage: 600 MG, 1 IN 6 WEEK, INTRAVENOUS
     Route: 042
     Dates: start: 20031210
  2. LEFLUNOMIDE (LEFLUNOMIDE) [Concomitant]
  3. LIPITOR [Concomitant]
  4. ACIPHEX [Concomitant]
  5. PREDNISONE [Concomitant]
  6. VITAMIN D [Concomitant]

REACTIONS (16)
  - ABDOMINAL PAIN [None]
  - AORTIC ATHEROSCLEROSIS [None]
  - ATELECTASIS [None]
  - DIVERTICULUM [None]
  - HAEMATOCRIT DECREASED [None]
  - HAEMOGLOBIN DECREASED [None]
  - ILEUS [None]
  - INFLAMMATION [None]
  - PANCREATITIS HAEMORRHAGIC [None]
  - PLATELET COUNT DECREASED [None]
  - PLEURAL EFFUSION [None]
  - PYREXIA [None]
  - SPLENIC ABSCESS [None]
  - SPLENIC RUPTURE [None]
  - SPLENIC VEIN THROMBOSIS [None]
  - WHITE BLOOD CELL COUNT INCREASED [None]
